FAERS Safety Report 7824403-8 (Version None)
Quarter: 2011Q4

REPORT INFORMATION
  Report Type: 
  Country: None (occurrence: None)
  Receive Date: 20111019
  Receipt Date: 20111012
  Transmission Date: 20120403
  Serious: Yes (Other)
  Sender: FDA-Public Use
  Company Number: US-ABBOTT-11P-163-0732346-00

PATIENT
  Sex: Female
  Weight: 90.8 kg

DRUGS (14)
  1. HUMIRA [Suspect]
     Dates: start: 20110501
  2. HUMIRA [Suspect]
     Indication: RHEUMATOID ARTHRITIS
     Dates: start: 20090101, end: 20100101
  3. HUMIRA [Suspect]
     Indication: RHEUMATOID ARTHRITIS
     Dates: start: 20100101, end: 20101001
  4. FEXOFENADINE [Concomitant]
     Indication: PRODUCT USED FOR UNKNOWN INDICATION
  5. WELLBUTRIN [Concomitant]
     Indication: PRODUCT USED FOR UNKNOWN INDICATION
  6. CELEXA [Concomitant]
  7. NEXIUM [Concomitant]
     Indication: PRODUCT USED FOR UNKNOWN INDICATION
  8. BIOTIN [Concomitant]
     Indication: PRODUCT USED FOR UNKNOWN INDICATION
  9. CALCIUM CARBONATE [Concomitant]
     Indication: PRODUCT USED FOR UNKNOWN INDICATION
  10. FOLIC ACID [Concomitant]
     Indication: PRODUCT USED FOR UNKNOWN INDICATION
  11. HUMIRA [Suspect]
  12. ASPIRIN [Concomitant]
     Indication: PRODUCT USED FOR UNKNOWN INDICATION
  13. CELEXA [Concomitant]
     Indication: DEPRESSION
  14. RELAFEN [Concomitant]
     Indication: PRODUCT USED FOR UNKNOWN INDICATION

REACTIONS (23)
  - DYSPNOEA [None]
  - AMNESIA [None]
  - RETINAL ARTERY OCCLUSION [None]
  - COGNITIVE DISORDER [None]
  - NECK PAIN [None]
  - TOOTH INFECTION [None]
  - COUGH [None]
  - CORNEAL DEPOSITS [None]
  - ARTHRALGIA [None]
  - BALANCE DISORDER [None]
  - LACERATION [None]
  - RESPIRATORY TRACT CONGESTION [None]
  - STAPHYLOCOCCAL PHARYNGITIS [None]
  - SPEECH DISORDER [None]
  - VISUAL IMPAIRMENT [None]
  - PNEUMONIA [None]
  - MEMORY IMPAIRMENT [None]
  - FALL [None]
  - AFFECTIVE DISORDER [None]
  - TOOTH LOSS [None]
  - VASCULAR DEMENTIA [None]
  - ATAXIA [None]
  - VISION BLURRED [None]
